FAERS Safety Report 9294677 (Version 1)
Quarter: 2013Q2

REPORT INFORMATION
  Report Type: Spontaneous
  Country: US (occurrence: US)
  Receive Date: 20130516
  Receipt Date: 20130516
  Transmission Date: 20140414
  Serious: Yes (Other)
  Sender: FDA-Public Use
  Company Number: US-PFIZER INC-2013147784

PATIENT
  Age: 12 Year
  Sex: Male

DRUGS (3)
  1. SERTRALINE HCL [Suspect]
     Indication: DEPRESSIVE SYMPTOM
     Dosage: 25 MG, DAILY
  2. SERTRALINE HCL [Suspect]
     Dosage: 25 MG, UNK
  3. SERTRALINE HCL [Suspect]
     Dosage: 50 MG, UNK

REACTIONS (4)
  - Serotonin syndrome [Unknown]
  - Mental impairment [Unknown]
  - Psychotic disorder [Unknown]
  - Aggression [Unknown]
